FAERS Safety Report 23862339 (Version 1)
Quarter: 2024Q2

REPORT INFORMATION
  Report Type: Report from Study
  Country: US (occurrence: None)
  Receive Date: 20240516
  Receipt Date: 20240516
  Transmission Date: 20240715
  Serious: Yes (Other)
  Sender: FDA-Public Use
  Company Number: 2024A112811

PATIENT
  Sex: Female

DRUGS (2)
  1. LYNPARZA [Suspect]
     Active Substance: OLAPARIB
     Indication: Liposarcoma
     Dosage: DAYS 1 TO 7 OF A 21
     Route: 048
  2. TEMOZOLOMIDE [Concomitant]
     Active Substance: TEMOZOLOMIDE

REACTIONS (4)
  - Capillary leak syndrome [Unknown]
  - Headache [Not Recovered/Not Resolved]
  - Fatigue [Unknown]
  - Nausea [Unknown]
